FAERS Safety Report 18919402 (Version 2)
Quarter: 2021Q1

REPORT INFORMATION
  Report Type: Report from Study
  Country: US (occurrence: US)
  Receive Date: 20210221
  Receipt Date: 20210324
  Transmission Date: 20210420
  Serious: No
  Sender: FDA-Public Use
  Company Number: NVSC2021US035628

PATIENT
  Age: 28 Year
  Sex: Female

DRUGS (4)
  1. KESIMPTA [Suspect]
     Active Substance: OFATUMUMAB
     Indication: RELAPSING MULTIPLE SCLEROSIS
     Dosage: 20 MG, QMO (VIA INJECTION)
     Route: 058
     Dates: start: 20201211
  2. KESIMPTA [Suspect]
     Active Substance: OFATUMUMAB
     Indication: CLINICALLY ISOLATED SYNDROME
     Dosage: UNK
     Route: 065
  3. KESIMPTA [Suspect]
     Active Substance: OFATUMUMAB
     Indication: RELAPSING-REMITTING MULTIPLE SCLEROSIS
  4. KESIMPTA [Suspect]
     Active Substance: OFATUMUMAB
     Indication: PROGRESSIVE MULTIPLE SCLEROSIS

REACTIONS (4)
  - Dysmenorrhoea [Not Recovered/Not Resolved]
  - Injection site pain [Recovering/Resolving]
  - Pain [Not Recovered/Not Resolved]
  - Injection site bruising [Recovering/Resolving]

NARRATIVE: CASE EVENT DATE: 20210108
